FAERS Safety Report 12442974 (Version 1)
Quarter: 2016Q2

REPORT INFORMATION
  Report Type: Spontaneous
  Country: GB (occurrence: GB)
  Receive Date: 20160607
  Receipt Date: 20160607
  Transmission Date: 20160815
  Serious: Yes (Hospitalization)
  Sender: FDA-Public Use
  Company Number: GB-TEVA-664639ACC

PATIENT
  Age: 92 Year
  Sex: Female

DRUGS (13)
  1. MOVICOL [Concomitant]
     Active Substance: POLYETHYLENE GLYCOL 3350\POTASSIUM CHLORIDE\SODIUM BICARBONATE\SODIUM CHLORIDE
  2. ALENDRONIC ACID [Suspect]
     Active Substance: ALENDRONIC ACID
     Indication: HIP FRACTURE
     Route: 048
  3. CLOPIDOGREL [Concomitant]
     Active Substance: CLOPIDOGREL BISULFATE
  4. PARACETAMOL [Concomitant]
     Active Substance: ACETAMINOPHEN
  5. GLYCERYL TRINITRATE [Concomitant]
     Active Substance: NITROGLYCERIN
  6. LORAZEPAM. [Concomitant]
     Active Substance: LORAZEPAM
  7. OMEPRAZOLE. [Concomitant]
     Active Substance: OMEPRAZOLE
  8. ADCAL-D3 [Concomitant]
     Active Substance: CALCIUM CARBONATE\CHOLECALCIFEROL
  9. NITROFURANTOIN. [Concomitant]
     Active Substance: NITROFURANTOIN
  10. CARBOMER [Concomitant]
     Active Substance: CARBOMER
     Dosage: 980
     Route: 050
  11. FERROUS SULFATE. [Concomitant]
     Active Substance: FERROUS SULFATE
  12. TRAVOPROST [Concomitant]
     Active Substance: TRAVOPROST
  13. ALGINATES [Concomitant]
     Dosage: ALGINATE RAFT FORMING ORAL LIQUID.
     Route: 048

REACTIONS (6)
  - Tracheo-oesophageal fistula [Unknown]
  - Oesophagitis [Recovered/Resolved with Sequelae]
  - Pyrexia [Unknown]
  - Dysphagia [Unknown]
  - Malaise [Unknown]
  - Abdominal pain [Recovered/Resolved with Sequelae]
